FAERS Safety Report 14206178 (Version 1)
Quarter: 2017Q4

REPORT INFORMATION
  Report Type: Spontaneous
  Country: GB (occurrence: GB)
  Receive Date: 20171120
  Receipt Date: 20171120
  Transmission Date: 20180321
  Serious: Yes (Hospitalization)
  Sender: FDA-Public Use
  Company Number: GB-MYLANLABS-2016M1039622

PATIENT
  Age: 50 Year
  Sex: Male

DRUGS (2)
  1. CLOZARIL [Suspect]
     Active Substance: CLOZAPINE
     Indication: SCHIZOPHRENIA
     Dosage: UNK
     Route: 048
     Dates: start: 19940104
  2. CLOZARIL [Suspect]
     Active Substance: CLOZAPINE
     Dosage: 550 MG, QOD
     Route: 048
     Dates: start: 20010701

REACTIONS (5)
  - Intentional dose omission [Unknown]
  - Blood pressure decreased [Recovered/Resolved]
  - Laboratory test abnormal [Unknown]
  - Schizophrenia [Unknown]
  - Treatment noncompliance [Unknown]

NARRATIVE: CASE EVENT DATE: 201601
